FAERS Safety Report 8182021-9 (Version None)
Quarter: 2012Q1

REPORT INFORMATION
  Report Type: 
  Country: None (occurrence: None)
  Receive Date: 20120302
  Receipt Date: 20120222
  Transmission Date: 20120608
  Serious: Yes (Other)
  Sender: FDA-Public Use
  Company Number: PHEH2012US002875

PATIENT
  Age: 68 Year
  Sex: Female

DRUGS (3)
  1. CHEMOTHERAPEUTICS [Concomitant]
  2. FEMARA [Suspect]
     Indication: BREAST CANCER STAGE III
     Dosage: 2.5 MG, UNK
  3. RADIATION THERAPY [Concomitant]

REACTIONS (5)
  - GAIT DISTURBANCE [None]
  - PERIPHERAL SENSORY NEUROPATHY [None]
  - LUMBAR RADICULOPATHY [None]
  - HYPOAESTHESIA [None]
  - NERVE INJURY [None]
